FAERS Safety Report 4710814-6 (Version None)
Quarter: 2005Q3

REPORT INFORMATION
  Report Type: 
  Country: None (occurrence: None)
  Receive Date: 20050706
  Receipt Date: 20050706
  Transmission Date: 20060218
  Serious: Yes (Death)
  Sender: FDA-Public Use
  Company Number: None

PATIENT
  Sex: Male
  Weight: 106 kg

DRUGS (3)
  1. ETOPOSIDE [Suspect]
     Dates: start: 20050609
  2. CISPLATIN [Suspect]
  3. TAXOTERE [Suspect]

REACTIONS (14)
  - ALANINE AMINOTRANSFERASE INCREASED [None]
  - ASPARTATE AMINOTRANSFERASE INCREASED [None]
  - BLOOD CREATININE INCREASED [None]
  - BLOOD UREA INCREASED [None]
  - BREATH SOUNDS ABNORMAL [None]
  - DYSPNOEA [None]
  - HAEMOGLOBIN ABNORMAL [None]
  - HEART RATE INCREASED [None]
  - HYPOTENSION [None]
  - OXYGEN SATURATION DECREASED [None]
  - PLATELET COUNT DECREASED [None]
  - PULSE ABNORMAL [None]
  - RADIATION PNEUMONITIS [None]
  - WHITE BLOOD CELL COUNT DECREASED [None]
